FAERS Safety Report 7765897-6 (Version None)
Quarter: 2011Q3

REPORT INFORMATION
  Report Type: 
  Country: None (occurrence: None)
  Receive Date: 20110921
  Receipt Date: 20110912
  Transmission Date: 20111222
  Serious: Yes (Hospitalization, Other)
  Sender: FDA-Public Use
  Company Number: US-ASTRAZENECA-2010SE47247

PATIENT
  Age: 72 Year
  Sex: Female
  Weight: 93 kg

DRUGS (22)
  1. SEROQUEL XR [Suspect]
     Indication: ANXIETY
     Route: 048
  2. NEURONTIN [Concomitant]
  3. ISORB [Concomitant]
  4. XANAX [Concomitant]
  5. DIGOXIN [Concomitant]
  6. ASPIRIN [Concomitant]
  7. SOTALOL HCL [Concomitant]
  8. LASIX [Concomitant]
     Dosage: PRN
  9. SEROQUEL XR [Suspect]
     Indication: DEPRESSION
     Route: 048
  10. CRESTOR [Suspect]
     Route: 048
  11. WARFARIN SODIUM [Concomitant]
     Dosage: VARING AMOUNT CURRENTLY ON 5 MG M-F, 2.5 S-S
  12. SPIRONOLACTONE [Concomitant]
  13. SYMBALTA [Concomitant]
  14. METOPROLOL TARTRATE [Concomitant]
  15. POTASSIUM [Concomitant]
     Dosage: PRN
  16. NEURONTIN [Concomitant]
  17. REGLAN [Concomitant]
  18. RANEXA [Concomitant]
  19. AMBIEN [Concomitant]
  20. MIDODRINE HYDROCHLORIDE [Concomitant]
  21. LEVOTHYROXINE SODIUM [Concomitant]
  22. LEVOXYL [Concomitant]

REACTIONS (15)
  - FALL [None]
  - LOSS OF CONSCIOUSNESS [None]
  - MIGRAINE [None]
  - ORTHOSTATIC HYPOTENSION [None]
  - DRUG DEPENDENCE [None]
  - DEPRESSION [None]
  - CHRONIC OBSTRUCTIVE PULMONARY DISEASE [None]
  - WRIST FRACTURE [None]
  - DRUG INEFFECTIVE [None]
  - UPPER LIMB FRACTURE [None]
  - SPINAL COLUMN STENOSIS [None]
  - FOOT FRACTURE [None]
  - WEIGHT ABNORMAL [None]
  - ANXIETY [None]
  - WEIGHT INCREASED [None]
